FAERS Safety Report 5413203-4 (Version None)
Quarter: 2007Q3

REPORT INFORMATION
  Report Type: 
  Country: None (occurrence: None)
  Receive Date: 20070814
  Receipt Date: 20070807
  Transmission Date: 20080115
  Serious: Yes (Hospitalization)
  Sender: FDA-Public Use
  Company Number: PHBS2007IT13286

PATIENT
  Age: 71 Year
  Sex: Male

DRUGS (3)
  1. MYFORTIC [Suspect]
     Indication: RENAL TRANSPLANT
     Dosage: 1440 MG/D
     Route: 048
     Dates: start: 20050101, end: 20070401
  2. SANDIMMUNE [Concomitant]
     Indication: RENAL TRANSPLANT
     Dosage: 200 MG/D
  3. MEDROL [Concomitant]
     Indication: RENAL TRANSPLANT
     Dosage: 8 MG/D

REACTIONS (2)
  - NEOPLASM SKIN [None]
  - TUMOUR EXCISION [None]
